FAERS Safety Report 4784569-3 (Version None)
Quarter: 2005Q3

REPORT INFORMATION
  Report Type: 
  Country: None (occurrence: None)
  Receive Date: 20050930
  Receipt Date: 20050921
  Transmission Date: 20060218
  Serious: Yes (Other)
  Sender: FDA-Public Use
  Company Number: PHNR2005AU01451

PATIENT

DRUGS (1)
  1. KETOTIFEN FUMARATE [Suspect]
     Indication: RASH

REACTIONS (1)
  - VASCULITIS [None]
